FAERS Safety Report 15549137 (Version 2)
Quarter: 2018Q4

REPORT INFORMATION
  Report Type: Spontaneous
  Country: US (occurrence: US)
  Receive Date: 20181025
  Receipt Date: 20181101
  Transmission Date: 20190205
  Serious: No
  Sender: FDA-Public Use
  Company Number: US-TEVA-2018-US-966678

PATIENT
  Age: 76 Year
  Sex: Female

DRUGS (6)
  1. ALPRAZOLAM. [Suspect]
     Active Substance: ALPRAZOLAM
     Indication: DEPRESSION
  2. FLONASE [Concomitant]
     Active Substance: FLUTICASONE PROPIONATE
  3. ALPRAZOLAM. [Suspect]
     Active Substance: ALPRAZOLAM
     Indication: ANXIETY
     Dates: start: 2006
  4. ZANTAC [Concomitant]
     Active Substance: RANITIDINE HYDROCHLORIDE
  5. LOSARTAN POTASSIUM TEVA [Concomitant]
     Active Substance: LOSARTAN POTASSIUM
  6. DEXAMETHASONE SODIUM PHOSPHATE. [Concomitant]
     Active Substance: DEXAMETHASONE SODIUM PHOSPHATE

REACTIONS (3)
  - Paraesthesia [Not Recovered/Not Resolved]
  - Burning sensation [Not Recovered/Not Resolved]
  - Paraesthesia oral [Not Recovered/Not Resolved]
